FAERS Safety Report 16142637 (Version 1)
Quarter: 2019Q2

REPORT INFORMATION
  Report Type: Report from Study
  Country: US (occurrence: US)
  Receive Date: 20190401
  Receipt Date: 20190401
  Transmission Date: 20190711
  Serious: Yes (Other)
  Sender: FDA-Public Use
  Company Number: US-BRISTOL-MYERS SQUIBB COMPANY-BMS-2019-027366

PATIENT
  Sex: Female

DRUGS (1)
  1. ABATACEPT [Suspect]
     Active Substance: ABATACEPT
     Indication: PRODUCT USED FOR UNKNOWN INDICATION
     Route: 065

REACTIONS (7)
  - Pelvic pain [Unknown]
  - Urethral obstruction [Unknown]
  - Arthralgia [Unknown]
  - Pollakiuria [Unknown]
  - Abdominal pain [Unknown]
  - Dysuria [Unknown]
  - Rash [Unknown]
